FAERS Safety Report 5389303-4 (Version None)
Quarter: 2007Q3

REPORT INFORMATION
  Report Type: 
  Country: None (occurrence: None)
  Receive Date: 20070713
  Receipt Date: 20070629
  Transmission Date: 20080115
  Serious: Yes (Death)
  Sender: FDA-Public Use
  Company Number: 2007S1005869

PATIENT
  Age: 57 Year
  Sex: Male
  Weight: 102.5129 kg

DRUGS (5)
  1. FENTANYL TRANSDERMAL SYSTEM [Suspect]
     Indication: COMPRESSION FRACTURE
     Dosage: 50 UG/HR; EVERY 3 DAYS; TRANSDERMAL; 100 UG/HR; EVERY 3 DAYS; TRANSDERMAL
     Route: 062
     Dates: start: 20070501, end: 20070521
  2. FENTANYL TRANSDERMAL SYSTEM [Suspect]
     Indication: COMPRESSION FRACTURE
     Dosage: 50 UG/HR; EVERY 3 DAYS; TRANSDERMAL; 100 UG/HR; EVERY 3 DAYS; TRANSDERMAL
     Route: 062
     Dates: start: 20070521, end: 20070525
  3. HYPNOTICS AND SEDATIVES [Suspect]
     Indication: ANXIETY
     Dosage: X1; INTRAVENOUS BOLUS
     Route: 040
     Dates: start: 20070525
  4. NORVASC [Concomitant]
  5. MICARDIS [Concomitant]

REACTIONS (6)
  - ANXIETY [None]
  - CEREBROVASCULAR ACCIDENT [None]
  - DRUG INEFFECTIVE [None]
  - DYSPNOEA EXERTIONAL [None]
  - PYREXIA [None]
  - RESPIRATORY ARREST [None]
